FAERS Safety Report 18717959 (Version 1)
Quarter: 2021Q1

REPORT INFORMATION
  Report Type: Spontaneous
  Country: US (occurrence: US)
  Receive Date: 20210108
  Receipt Date: 20210108
  Transmission Date: 20210419
  Serious: No
  Sender: FDA-Public Use
  Company Number: NVSC2021US003119

PATIENT
  Sex: Female

DRUGS (1)
  1. NEOMYCIN+POLY B SULFATE+ HYDROCORT [Suspect]
     Active Substance: HYDROCORTISONE\NEOMYCIN SULFATE\POLYMYXIN B SULFATE
     Indication: PRODUCT USED FOR UNKNOWN INDICATION
     Route: 065

REACTIONS (3)
  - Accident [Unknown]
  - Dizziness [Unknown]
  - Product leakage [Unknown]
